FAERS Safety Report 4891387-4 (Version None)
Quarter: 2005Q4

REPORT INFORMATION
  Report Type: 
  Country: None (occurrence: None)
  Receive Date: 20051223
  Receipt Date: 20050912
  Transmission Date: 20060501
  Serious: No
  Sender: FDA-Public Use
  Company Number: 217677

PATIENT
  Age: 68 Year
  Sex: Female
  Weight: 119.7 kg

DRUGS (9)
  1. AVASTIN [Suspect]
     Indication: COLON CANCER METASTATIC
     Dosage: 5 MG/KG, Q2W, INTRAVENOUS
     Route: 042
     Dates: start: 20050509
  2. LASIX [Concomitant]
  3. COUMADIN [Concomitant]
  4. ACCUPRIL [Concomitant]
  5. LOPRESSOR [Concomitant]
  6. PROTONIX [Concomitant]
  7. INSULIN [Concomitant]
  8. ISOSORBIDE (ISOSORBIDE NOS) [Concomitant]
  9. FLOMAX [Concomitant]

REACTIONS (1)
  - PROTEINURIA [None]
